FAERS Safety Report 4825480-9 (Version None)
Quarter: 2005Q4

REPORT INFORMATION
  Report Type: 
  Country: None (occurrence: None)
  Receive Date: 20051111
  Receipt Date: 20051014
  Transmission Date: 20060501
  Serious: Yes (Hospitalization)
  Sender: FDA-Public Use
  Company Number: FR-MERCK-0510FRA00046

PATIENT
  Age: 51 Year
  Sex: Male

DRUGS (7)
  1. PRIMAXIN [Suspect]
     Indication: PSEUDOMONAS INFECTION
     Route: 042
     Dates: start: 20050629, end: 20050711
  2. PRIMAXIN [Suspect]
     Indication: PELVIC INFECTION
     Route: 042
     Dates: start: 20050629, end: 20050711
  3. AMIKACIN SULFATE [Concomitant]
     Indication: PELVIC INFECTION
     Route: 042
     Dates: start: 20050629, end: 20050718
  4. NEFOPAM [Concomitant]
     Route: 065
  5. FLUCONAZOLE [Concomitant]
     Indication: PELVIC INFECTION
     Route: 065
     Dates: start: 20050629, end: 20050718
  6. ENOXAPARIN SODIUM [Concomitant]
     Indication: THROMBOSIS PROPHYLAXIS
     Route: 058
  7. VANCOMYCIN [Concomitant]
     Indication: PELVIC INFECTION
     Route: 042
     Dates: start: 20050629, end: 20050718

REACTIONS (2)
  - EOSINOPHILIA [None]
  - MYOCARDITIS [None]
